FAERS Safety Report 18270471 (Version 2)
Quarter: 2020Q3

REPORT INFORMATION
  Report Type: Spontaneous
  Country: IL (occurrence: IL)
  Receive Date: 20200915
  Receipt Date: 20200928
  Transmission Date: 20201103
  Serious: Yes (Hospitalization)
  Sender: FDA-Public Use
  Company Number: IL-TEVA-2020-IL-1827341

PATIENT
  Age: 53 Year
  Sex: Female

DRUGS (2)
  1. CISPLATIN. [Suspect]
     Active Substance: CISPLATIN
     Indication: PERICARDIAL EFFUSION MALIGNANT
     Dosage: 50 MG OF CISPLATIN DISSOLVED IN 100 ML OF SODIUM CHLORIDE WAS ADMINISTERED DURING 60 MIN INTRAPER...
     Route: 032
  2. NORMAL SALINE [Concomitant]
     Active Substance: SODIUM CHLORIDE
     Indication: VEHICLE SOLUTION USE
     Dosage: CISPLATIN DISSOLVED IN 100 ML OF SODIUM CHLORIDE WAS ADMINISTERED DURING 60 MIN INTRAPERICARDIALLY
     Route: 032

REACTIONS (2)
  - Pericardial fibrosis [Recovering/Resolving]
  - Pericarditis adhesive [Recovering/Resolving]
